FAERS Safety Report 6573531-6 (Version None)
Quarter: 2010Q1

REPORT INFORMATION
  Report Type: 
  Country: None (occurrence: None)
  Receive Date: 20100208
  Receipt Date: 20100126
  Transmission Date: 20100710
  Serious: Yes (Other)
  Sender: FDA-Public Use
  Company Number: US-ROCHE-640697

PATIENT
  Sex: Female
  Weight: 68 kg

DRUGS (11)
  1. BEVACIZUMAB [Suspect]
     Route: 042
     Dates: start: 20090416
  2. CAPECITABINE [Suspect]
     Route: 048
     Dates: start: 20090406
  3. CAPECITABINE [Suspect]
     Dosage: 2 TAB (1000 MG) AM, 3 TAB (1500 MG) PM, 2 WEEKS ON AND 1 WEEK OFF
     Route: 048
     Dates: start: 20090403, end: 20100111
  4. COUMADIN [Suspect]
     Indication: THROMBOPHLEBITIS
     Dosage: DAILY
     Route: 048
     Dates: start: 20090610
  5. ZOLOFT [Concomitant]
     Indication: DEPRESSION
     Route: 048
     Dates: start: 20000101
  6. ZOCOR [Concomitant]
     Route: 048
     Dates: start: 20000101
  7. GABAPENTIN [Concomitant]
     Route: 048
     Dates: start: 20070518
  8. GABAPENTIN [Concomitant]
     Route: 048
  9. DILAUDID [Concomitant]
     Route: 048
     Dates: start: 20080708
  10. SIMVASTATIN [Concomitant]
     Route: 048
  11. LEVOXYL [Concomitant]
     Indication: HYPOTHYROIDISM
     Dosage: DOSE: 0.5 DAILY
     Route: 048

REACTIONS (9)
  - BALANCE DISORDER [None]
  - CONTUSION [None]
  - DEEP VEIN THROMBOSIS [None]
  - FALL [None]
  - GAIT DISTURBANCE [None]
  - HAEMATOMA [None]
  - INTERNATIONAL NORMALISED RATIO INCREASED [None]
  - LIMB INJURY [None]
  - PHLEBITIS [None]
